FAERS Safety Report 16256781 (Version 1)
Quarter: 2019Q2

REPORT INFORMATION
  Report Type: Spontaneous
  Country: FR (occurrence: FR)
  Receive Date: 20190430
  Receipt Date: 20190430
  Transmission Date: 20190711
  Serious: Yes (Death)
  Sender: FDA-Public Use
  Company Number: FR-MYLANLABS-2019M1039943

PATIENT
  Age: 37 Year
  Sex: Male
  Weight: 74 kg

DRUGS (3)
  1. ENTYVIO [Suspect]
     Active Substance: VEDOLIZUMAB
     Indication: GRAFT VERSUS HOST DISEASE IN GASTROINTESTINAL TRACT
     Dosage: CF COMMENTAIRE
     Route: 042
     Dates: start: 20180530, end: 20180905
  2. PREDNISONE. [Suspect]
     Active Substance: PREDNISONE
     Indication: GRAFT VERSUS HOST DISEASE IN GASTROINTESTINAL TRACT
     Dosage: 5 MILLIGRAM, QD
     Route: 048
     Dates: start: 20180725, end: 20181015
  3. HYDROCORTISONE ROUSSEL             /00028601/ [Interacting]
     Active Substance: HYDROCORTISONE
     Indication: ENDOCRINE DISORDER PROPHYLAXIS
     Dosage: 20 MILLIGRAM, QD
     Route: 048
     Dates: start: 20180822, end: 20181015

REACTIONS (2)
  - Septic shock [Fatal]
  - Drug interaction [Fatal]

NARRATIVE: CASE EVENT DATE: 20181015
